FAERS Safety Report 7783190-2 (Version None)
Quarter: 2011Q3

REPORT INFORMATION
  Report Type: 
  Country: None (occurrence: None)
  Receive Date: 20110928
  Receipt Date: 20091101
  Transmission Date: 20111222
  Serious: No
  Sender: FDA-Public Use
  Company Number: US-MYLANLABS-2009S1019170

PATIENT
  Age: 77 Year
  Sex: Male

DRUGS (1)
  1. NITRGLYCERIN TRANSDERMAL SYSTEM [Suspect]
     Route: 062
     Dates: start: 20091024

REACTIONS (1)
  - VIITH NERVE PARALYSIS [None]
